FAERS Safety Report 18526309 (Version 2)
Quarter: 2020Q4

REPORT INFORMATION
  Report Type: Report from Study
  Country: US (occurrence: US)
  Receive Date: 20201120
  Receipt Date: 20201203
  Transmission Date: 20210114
  Serious: Yes (Life-Threatening, Other)
  Sender: FDA-Public Use
  Company Number: US-GLAXOSMITHKLINE-US2020GSK221023

PATIENT
  Age: 31 Year
  Sex: Male

DRUGS (2)
  1. BUTAMIRATE CITRATE [Suspect]
     Active Substance: BUTAMIRATE CITRATE
     Dosage: UNK
  2. NICOTINE. [Suspect]
     Active Substance: NICOTINE
     Indication: EX-TOBACCO USER
     Dosage: 2 MG, BID, DAILY
     Dates: start: 20160105

REACTIONS (1)
  - Toxic epidermal necrolysis [Unknown]

NARRATIVE: CASE EVENT DATE: 20160224
